FAERS Safety Report 8533274-6 (Version None)
Quarter: 2012Q3

REPORT INFORMATION
  Report Type: 
  Country: None (occurrence: None)
  Receive Date: 20120724
  Receipt Date: 20120718
  Transmission Date: 20120928
  Serious: Yes (Death)
  Sender: FDA-Public Use
  Company Number: TN-SANOFI-AVENTIS-2012SA051188

PATIENT
  Age: 77 Year
  Sex: Male

DRUGS (6)
  1. INSULIN [Concomitant]
     Route: 058
     Dates: end: 20120712
  2. PLAVIX [Suspect]
     Route: 048
     Dates: start: 20120123, end: 20120712
  3. ATORVASTATIN [Concomitant]
     Route: 048
     Dates: end: 20120712
  4. ASPEGIC 1000 [Concomitant]
     Route: 048
     Dates: end: 20120712
  5. LASIX [Concomitant]
     Route: 048
     Dates: end: 20120712
  6. PROPRANOLOL [Concomitant]
     Route: 048
     Dates: end: 20120712

REACTIONS (1)
  - RENAL FAILURE [None]
